FAERS Safety Report 10274594 (Version 2)
Quarter: 2014Q3

REPORT INFORMATION
  Report Type: Spontaneous
  Country: US (occurrence: US)
  Receive Date: 20140702
  Receipt Date: 20140813
  Transmission Date: 20150326
  Serious: Yes (Other)
  Sender: FDA-Public Use
  Company Number: US-SHIONOGI, INC-2014000627

PATIENT
  Age: 56 Year
  Sex: Female

DRUGS (1)
  1. OSPHENA [Suspect]
     Active Substance: OSPEMIFENE
     Indication: DYSPAREUNIA
     Dosage: UNK
     Route: 065

REACTIONS (3)
  - Upper limb fracture [Recovering/Resolving]
  - Fall [Recovering/Resolving]
  - Thrombophlebitis [Recovering/Resolving]

NARRATIVE: CASE EVENT DATE: 201401
